FAERS Safety Report 10747911 (Version 1)
Quarter: 2015Q1

REPORT INFORMATION
  Report Type: Spontaneous
  Country: US (occurrence: US)
  Receive Date: 20150129
  Receipt Date: 20150129
  Transmission Date: 20150721
  Serious: Yes (Other)
  Sender: FDA-Public Use
  Company Number: US-BAYER-2015-011051

PATIENT
  Age: 28 Year
  Sex: Female

DRUGS (1)
  1. BETASERON [Suspect]
     Active Substance: INTERFERON BETA-1B
     Indication: MULTIPLE SCLEROSIS
     Dosage: 0.25 MG, QOD
     Route: 058
     Dates: start: 201411

REACTIONS (4)
  - Pain in extremity [None]
  - Multiple sclerosis relapse [None]
  - Pain [None]
  - Back pain [None]

NARRATIVE: CASE EVENT DATE: 20150121
